FAERS Safety Report 9173878 (Version 1)
Quarter: 2013Q1

REPORT INFORMATION
  Report Type: Spontaneous
  Country: US (occurrence: None)
  Receive Date: 20130318
  Receipt Date: 20130318
  Transmission Date: 20140127
  Serious: Yes (Other)
  Sender: FDA-Public Use
  Company Number: None

PATIENT
  Age: 59 Year
  Sex: Female
  Weight: 63.5 kg

DRUGS (1)
  1. LUNESTA [Suspect]
     Indication: INSOMNIA
     Dosage: 1, NIGHT
     Dates: start: 20020101, end: 20120701

REACTIONS (1)
  - Salivary gland disorder [None]
